FAERS Safety Report 8768785 (Version 2)
Quarter: 2016Q2

REPORT INFORMATION
  Report Type: Spontaneous
  Country: VE (occurrence: VE)
  Receive Date: 20120906
  Receipt Date: 20160429
  Transmission Date: 20160815
  Serious: No
  Sender: FDA-Public Use
  Company Number: VE-ROCHE-1114871

PATIENT
  Sex: Female

DRUGS (1)
  1. MABTHERA [Suspect]
     Active Substance: RITUXIMAB
     Indication: RHEUMATOID ARTHRITIS
     Dosage: FOR 4 DOSES, EVERY 6 MONTHS
     Route: 041
     Dates: start: 20110701, end: 20120815

REACTIONS (1)
  - Pregnancy [Unknown]
